FAERS Safety Report 9133487 (Version 1)
Quarter: 2013Q1

REPORT INFORMATION
  Report Type: Spontaneous
  Country: US (occurrence: US)
  Receive Date: 20130128
  Receipt Date: 20130128
  Transmission Date: 20140127
  Serious: No
  Sender: FDA-Public Use
  Company Number: US-009507513-1301USA010514

PATIENT
  Sex: Female

DRUGS (2)
  1. DECADRON [Suspect]
  2. CRIZOTINIB [Concomitant]
     Dosage: UNK
     Dates: start: 20121029

REACTIONS (4)
  - Vision blurred [Recovered/Resolved]
  - Nausea [Recovered/Resolved]
  - Headache [Recovered/Resolved]
  - Vomiting [Recovered/Resolved]
